FAERS Safety Report 14413304 (Version 1)
Quarter: 2018Q1

REPORT INFORMATION
  Report Type: Spontaneous
  Country: US (occurrence: US)
  Receive Date: 20180119
  Receipt Date: 20180119
  Transmission Date: 20180509
  Serious: Yes (Hospitalization)
  Sender: FDA-Public Use
  Company Number: None

PATIENT
  Age: 53 Year
  Sex: Male
  Weight: 68.1 kg

DRUGS (10)
  1. ECOTRIN [Concomitant]
     Active Substance: ASPIRIN
  2. LIPITOR [Concomitant]
     Active Substance: ATORVASTATIN CALCIUM
  3. NEPHRO [Concomitant]
  4. WARFARIN [Suspect]
     Active Substance: WARFARIN
     Indication: HAEMOPERFUSION
     Dosage: 5MG DAILY WITH PM MEAL PO?CHRONIC
     Route: 048
  5. COREG [Concomitant]
     Active Substance: CARVEDILOL
  6. VOLTAREN [Concomitant]
     Active Substance: DICLOFENAC SODIUM
  7. APRESOLINE HYDROCHLORIDE [Concomitant]
     Active Substance: HYDRALAZINE HYDROCHLORIDE
  8. ALBUTEROL. [Concomitant]
     Active Substance: ALBUTEROL
  9. PHOSLO [Concomitant]
     Active Substance: CALCIUM ACETATE
  10. NICODERM CQ [Concomitant]
     Active Substance: NICOTINE

REACTIONS (6)
  - Pain in extremity [None]
  - International normalised ratio increased [None]
  - Lower gastrointestinal haemorrhage [None]
  - Anaemia [None]
  - Rectal haemorrhage [None]
  - Therapy cessation [None]

NARRATIVE: CASE EVENT DATE: 20170802
